FAERS Safety Report 12221019 (Version 2)
Quarter: 2016Q3

REPORT INFORMATION
  Report Type: Report from Study
  Country: CZ (occurrence: CZ)
  Receive Date: 20160330
  Receipt Date: 20160815
  Transmission Date: 20161109
  Serious: Yes (Death, Life-Threatening, Hospitalization, Disabling, Other)
  Sender: FDA-Public Use
  Company Number: CZ-BAYER-2016-054970

PATIENT
  Age: 71 Year
  Sex: Female
  Weight: 58 kg

DRUGS (21)
  1. STIVARGA [Suspect]
     Active Substance: REGORAFENIB
     Indication: COLORECTAL CANCER METASTATIC
     Dosage: 3 TAB /DAY (3-0-0)
     Dates: start: 20160126, end: 2016
  2. TARGIN [Concomitant]
     Active Substance: NALOXONE HYDROCHLORIDE\OXYCODONE HYDROCHLORIDE
     Dosage: DAILY DOSE 20MG
     Dates: start: 20160107
  3. BETALOC [Concomitant]
     Active Substance: METOPROLOL TARTRATE
  4. GORDIUS [Concomitant]
  5. CITALON [Concomitant]
     Dosage: DAILY DOSE 20MG
     Dates: start: 20160107
  6. DOLSIN [Concomitant]
  7. CERUCAL [Concomitant]
     Active Substance: METOCLOPRAMIDE HYDROCHLORIDE
  8. NOVALGIN [Concomitant]
     Active Substance: METAMIZOLE SODIUM
     Dosage: DAILY DOSE 1500MG
     Dates: start: 20160107
  9. GRANISETRON [Concomitant]
     Active Substance: GRANISETRON
     Dosage: DAILY DOSE 2MG
     Dates: start: 20160107
  10. FUROSEMID [Concomitant]
     Active Substance: FUROSEMIDE
  11. STILNOX [Concomitant]
     Active Substance: ZOLPIDEM TARTRATE
     Dosage: DAILY DOSE 10MG
     Dates: start: 20160107
  12. TORECAN [Concomitant]
     Active Substance: THIETHYLPERAZINE MALATE
     Dosage: DAILY DOSE 12.5MG
     Dates: start: 20160107
  13. PARACETAMOL [Concomitant]
     Active Substance: ACETAMINOPHEN
  14. AMOKSIKLAV [Concomitant]
     Active Substance: AMOXICILLIN\CLAVULANATE POTASSIUM
  15. VEROSPIRON [Concomitant]
     Active Substance: SPIRONOLACTONE
  16. DEGAN [Concomitant]
     Active Substance: METOCLOPRAMIDE HYDROCHLORIDE
     Dosage: DAILY DOSE 30MG
     Dates: start: 20160107
  17. FORTECORTIN [Concomitant]
     Active Substance: DEXAMETHASONE
     Dosage: DAILY DOSE 4MG
     Dates: start: 20160107
  18. STIVARGA [Suspect]
     Active Substance: REGORAFENIB
     Indication: COLORECTAL CANCER METASTATIC
     Dosage: 3 TAB /DAY (3-0-0)
     Dates: start: 20160229, end: 20160317
  19. CONTROLOC [Concomitant]
     Active Substance: PANTOPRAZOLE SODIUM
     Dosage: DAILY DOSE 80MG
     Dates: start: 20160107
  20. MGSO4 [Concomitant]
     Active Substance: MAGNESIUM SULFATE
  21. CLEXANE [Concomitant]
     Active Substance: ENOXAPARIN SODIUM

REACTIONS (3)
  - Pneumonia [Fatal]
  - Lymphoedema [Not Recovered/Not Resolved]
  - Infection [Not Recovered/Not Resolved]

NARRATIVE: CASE EVENT DATE: 20160317
